FAERS Safety Report 6104325-3 (Version None)
Quarter: 2009Q1

REPORT INFORMATION
  Report Type: 
  Country: None (occurrence: None)
  Receive Date: 20090302
  Receipt Date: 20090220
  Transmission Date: 20090719
  Serious: Yes (Hospitalization, Other)
  Sender: FDA-Public Use
  Company Number: 2009SP004178

PATIENT
  Age: 51 Year
  Sex: Male

DRUGS (3)
  1. PEG-INTRON [Suspect]
     Indication: HEPATITIS C
     Dosage: 120 MCG; QW; SC
     Route: 058
     Dates: start: 20081202
  2. RIBAVIRIN [Suspect]
     Indication: HEPATITIS C
  3. EPOGEN [Concomitant]

REACTIONS (2)
  - HYPOGLYCAEMIA [None]
  - SYNCOPE [None]
